FAERS Safety Report 9345688 (Version 2)
Quarter: 2013Q3

REPORT INFORMATION
  Report Type: Spontaneous
  Country: US (occurrence: US)
  Receive Date: 20130613
  Receipt Date: 20130731
  Transmission Date: 20140515
  Serious: Yes (Other)
  Sender: FDA-Public Use
  Company Number: PHEH2013US012641

PATIENT
  Sex: Male

DRUGS (1)
  1. DIOVAN HCT [Suspect]
     Dosage: (VALS 160 MG, HYDR 12.5 MG)

REACTIONS (4)
  - Thrombosis [Unknown]
  - Arthritis [Unknown]
  - Nervousness [Unknown]
  - Tremor [Unknown]
